FAERS Safety Report 8559849-6 (Version None)
Quarter: 2012Q3

REPORT INFORMATION
  Report Type: 
  Country: None (occurrence: None)
  Receive Date: 20120802
  Receipt Date: 20120720
  Transmission Date: 20120928
  Serious: Yes (Hospitalization, Other)
  Sender: FDA-Public Use
  Company Number: TR-COVIDIEN/TYCO HEALTHCARE/MALLINCKRODT-T201202906

PATIENT
  Age: 59 Year
  Sex: Female

DRUGS (1)
  1. PENNSAID [Suspect]
     Indication: BACK PAIN
     Dosage: UNK
     Route: 030

REACTIONS (2)
  - RESPIRATORY ARREST [None]
  - POSTERIOR REVERSIBLE ENCEPHALOPATHY SYNDROME [None]
